FAERS Safety Report 24379769 (Version 1)
Quarter: 2024Q3

REPORT INFORMATION
  Report Type: Spontaneous
  Country: US (occurrence: US)
  Receive Date: 20240930
  Receipt Date: 20240930
  Transmission Date: 20241017
  Serious: Yes (Other)
  Sender: BAYER
  Company Number: US-BAYER-2024A131982

PATIENT

DRUGS (3)
  1. AFRIN ORIGINAL NASAL [Suspect]
     Active Substance: OXYMETAZOLINE HYDROCHLORIDE
     Indication: Nasal congestion
     Dosage: UNK
  2. EUCALYPTOL\MENTHOL\ROSEMARY OIL [Suspect]
     Active Substance: EUCALYPTOL\MENTHOL\ROSEMARY OIL
     Indication: Nasal congestion
  3. EUCALYPTOL\MENTHOL\ROSEMARY OIL [Suspect]
     Active Substance: EUCALYPTOL\MENTHOL\ROSEMARY OIL
     Indication: Illness

REACTIONS (2)
  - Drug dependence [Recovered/Resolved]
  - Therapeutic response unexpected [None]
